FAERS Safety Report 6950584-4 (Version None)
Quarter: 2010Q3

REPORT INFORMATION
  Report Type: 
  Country: None (occurrence: None)
  Receive Date: 20100828
  Receipt Date: 20100212
  Transmission Date: 20110219
  Serious: No
  Sender: FDA-Public Use
  Company Number: US-ABBOTT-10P-163-0627192-00

PATIENT
  Age: 51 Year
  Sex: Male
  Weight: 75.364 kg

DRUGS (3)
  1. NIASPAN [Suspect]
     Indication: HYPERLIPIDAEMIA
     Route: 048
  2. TRILIPIX [Suspect]
     Indication: HYPERLIPIDAEMIA
     Route: 048
     Dates: start: 20090901
  3. PERCOCET [Concomitant]
     Indication: BACK PAIN

REACTIONS (3)
  - BLOOD TRIGLYCERIDES ABNORMAL [None]
  - FLUSHING [None]
  - URTICARIA [None]
